FAERS Safety Report 23457970 (Version 3)
Quarter: 2024Q1

REPORT INFORMATION
  Report Type: Spontaneous
  Country: US (occurrence: US)
  Receive Date: 20240130
  Receipt Date: 20240313
  Transmission Date: 20240409
  Serious: Yes (Other)
  Sender: FDA-Public Use
  Company Number: US-TEVA-VS-3149104

PATIENT
  Age: 71 Year
  Sex: Female

DRUGS (7)
  1. OLOPATADINE [Suspect]
     Active Substance: OLOPATADINE
     Indication: Iridocyclitis
     Route: 047
  2. ZOLEDRONIC ACID [Suspect]
     Active Substance: ZOLEDRONIC ACID
     Indication: Osteoporosis
     Route: 050
  3. CETIRIZINE [Suspect]
     Active Substance: CETIRIZINE HYDROCHLORIDE
     Indication: Iridocyclitis
     Route: 065
  4. OFLOXACIN [Suspect]
     Active Substance: OFLOXACIN
     Indication: Iridocyclitis
     Route: 047
  5. POLYMYXIN B [Suspect]
     Active Substance: POLYMYXIN B
     Indication: Iridocyclitis
     Route: 047
  6. VITAMIN D NOS [Concomitant]
     Active Substance: VITAMIN D NOS
     Indication: Osteoporosis
     Route: 065
  7. CALCIUM [Concomitant]
     Active Substance: CALCIUM
     Indication: Osteoporosis
     Route: 065

REACTIONS (2)
  - Iridocyclitis [Recovered/Resolved]
  - Drug ineffective [Unknown]
